FAERS Safety Report 5590620-3 (Version None)
Quarter: 2008Q1

REPORT INFORMATION
  Report Type: 
  Country: None (occurrence: None)
  Receive Date: 20080114
  Receipt Date: 20071231
  Transmission Date: 20080703
  Serious: Yes (Hospitalization)
  Sender: FDA-Public Use
  Company Number: PL-PFIZER INC-2007065745

PATIENT
  Age: 45 Year
  Sex: Male
  Weight: 82 kg

DRUGS (4)
  1. VIRLIX [Suspect]
     Indication: URTICARIA
     Route: 048
     Dates: start: 20070618, end: 20070618
  2. ATARAX [Suspect]
     Indication: URTICARIA
     Route: 048
     Dates: start: 20070618, end: 20070618
  3. ENCORTON [Concomitant]
  4. FLUCINAR [Concomitant]

REACTIONS (2)
  - GAIT DISTURBANCE [None]
  - VERTIGO [None]
